FAERS Safety Report 4622739-5 (Version None)
Quarter: 2005Q1

REPORT INFORMATION
  Report Type: 
  Country: None (occurrence: None)
  Receive Date: 20050329
  Receipt Date: 20050329
  Transmission Date: 20050727
  Serious: No
  Sender: FDA-Public Use
  Company Number: None

PATIENT
  Sex: Male
  Weight: 83.7 kg

DRUGS (6)
  1. CISPLATIN [Suspect]
     Dosage: 100 MG/M2 ON DAYS 1,22, AND 43
     Dates: start: 20050127
  2. RADIATION [Suspect]
  3. HYDROCODONE ELIXIR [Concomitant]
  4. LIPITOR [Concomitant]
  5. METOPROLOL TARTRATE [Concomitant]
  6. XYLOXYLIN [Concomitant]

REACTIONS (2)
  - FEBRILE NEUTROPENIA [None]
  - MUCOSAL INFLAMMATION [None]
